FAERS Safety Report 17889535 (Version 1)
Quarter: 2020Q2

REPORT INFORMATION
  Report Type: Spontaneous
  Country: US (occurrence: US)
  Receive Date: 20200612
  Receipt Date: 20200612
  Transmission Date: 20200714
  Serious: Yes (Death, Hospitalization)
  Sender: FDA-Public Use
  Company Number: US-MICRO LABS LIMITED-ML2020-01757

PATIENT
  Sex: Male

DRUGS (12)
  1. THIOTEPA. [Concomitant]
     Active Substance: THIOTEPA
     Indication: SURGICAL PRECONDITIONING
  2. METRONIDAZOLE. [Suspect]
     Active Substance: METRONIDAZOLE
     Dosage: 10 DAYS
  3. AMIKACIN. [Suspect]
     Active Substance: AMIKACIN
     Dosage: 23 DAYS
  4. LEVOFLOXACIN. [Suspect]
     Active Substance: LEVOFLOXACIN
     Indication: ANTIBIOTIC PROPHYLAXIS
     Dosage: 7 DAYS
  5. MEROPENEM. [Suspect]
     Active Substance: MEROPENEM
     Indication: ANTIBIOTIC PROPHYLAXIS
     Dosage: 33 DAYS
  6. CEFEPIME [Suspect]
     Active Substance: CEFEPIME HYDROCHLORIDE
     Dosage: 19 DAYS
  7. CEFTAZIDIME. [Suspect]
     Active Substance: CEFTAZIDIME
     Dosage: 19 DAYS
  8. MELPHALAN. [Concomitant]
     Active Substance: MELPHALAN
     Indication: SURGICAL PRECONDITIONING
  9. ANTITHYMOCYTE GLOBULIN [Concomitant]
     Active Substance: THYMOCYTE IMMUNE GLOBULIN NOS
     Indication: SURGICAL PRECONDITIONING
  10. COLISTIN [Suspect]
     Active Substance: COLISTIN
     Dosage: 20 DAYS
  11. TIGECYCLINE. [Suspect]
     Active Substance: TIGECYCLINE
     Dosage: 14 DAYS
  12. FLUDARABINE [Concomitant]
     Active Substance: FLUDARABINE PHOSPHATE
     Indication: SURGICAL PRECONDITIONING

REACTIONS (3)
  - Multiple-drug resistance [Not Recovered/Not Resolved]
  - Escherichia sepsis [Not Recovered/Not Resolved]
  - Multiple organ dysfunction syndrome [Fatal]
